FAERS Safety Report 14825865 (Version 3)
Quarter: 2018Q4

REPORT INFORMATION
  Report Type: Spontaneous
  Country: US (occurrence: US)
  Receive Date: 20180430
  Receipt Date: 20181206
  Transmission Date: 20190204
  Serious: No
  Sender: FDA-Public Use
  Company Number: US-PFIZER INC-2018171020

PATIENT
  Sex: Female

DRUGS (2)
  1. WATER BACTERIOSTATIC [Suspect]
     Active Substance: WATER
     Dosage: UNK
     Dates: end: 201802
  2. WATER BACTERIOSTATIC [Suspect]
     Active Substance: WATER
     Dosage: UNK, (0.1-1ML UP TO 5X A DAY)
     Dates: start: 201801

REACTIONS (2)
  - Injection site pain [Recovered/Resolved]
  - Intentional product misuse [Unknown]

NARRATIVE: CASE EVENT DATE: 20180108
